FAERS Safety Report 9830774 (Version 1)
Quarter: 2014Q1

REPORT INFORMATION
  Report Type: Spontaneous
  Country: BR (occurrence: BR)
  Receive Date: 20140120
  Receipt Date: 20140120
  Transmission Date: 20141002
  Serious: Yes (Other)
  Sender: FDA-Public Use
  Company Number: BR-ELI_LILLY_AND_COMPANY-BR201401002480

PATIENT
  Age: 55 Year
  Sex: Male

DRUGS (8)
  1. HUMULIN N [Suspect]
     Indication: TYPE 2 DIABETES MELLITUS
     Dosage: 40 IU, EACH MORNING
     Route: 058
     Dates: start: 2011
  2. HUMULIN N [Suspect]
     Dosage: 40 IU, EACH EVENING
     Route: 058
     Dates: start: 2011
  3. HUMULIN N [Suspect]
     Indication: TYPE 2 DIABETES MELLITUS
     Dosage: 40 IU, EACH MORNING
     Route: 058
     Dates: start: 2013
  4. HUMULIN N [Suspect]
     Dosage: 40 IU, EACH EVENING
     Route: 058
     Dates: start: 2013
  5. METFORMIN [Concomitant]
     Indication: PRODUCT USED FOR UNKNOWN INDICATION
     Dosage: 850 MG, EACH MORNING
     Route: 065
  6. METFORMIN [Concomitant]
     Dosage: 850 MG, EACH EVENING
     Route: 065
  7. LOSARTAN [Concomitant]
     Indication: PRODUCT USED FOR UNKNOWN INDICATION
     Dosage: 50 MG, EACH MORNING
     Route: 065
  8. LOSARTAN [Concomitant]
     Dosage: 50 MG, EACH EVENING
     Route: 065

REACTIONS (3)
  - Blindness [Not Recovered/Not Resolved]
  - Cataract [Not Recovered/Not Resolved]
  - Hyperglycaemia [Recovered/Resolved]
